FAERS Safety Report 8870351 (Version 1)
Quarter: 2012Q4

REPORT INFORMATION
  Report Type: 
  Country: US (occurrence: US)
  Receive Date: 20121023
  Receipt Date: 20121023
  Transmission Date: 20130627
  Serious: No
  Sender: FDA-Public Use
  Company Number: US-AMGEN-USASP2012010663

PATIENT
  Age: 66 Year
  Sex: Female
  Weight: 72.56 kg

DRUGS (7)
  1. CALCIUM +D                         /00188401/ [Concomitant]
     Dosage: UNK
  2. FOLIC ACID [Concomitant]
     Dosage: UNK
  3. PROBIOTIC [Concomitant]
  4. ENBREL [Suspect]
     Indication: PRODUCT USED FOR UNKNOWN INDICATION
     Dosage: UNK
  5. SYNTHROID [Concomitant]
     Dosage: 25 mug, UNK
  6. NABUMETONE [Concomitant]
     Dosage: 500 mg, UNK
  7. PRILOSEC                           /00661201/ [Concomitant]
     Dosage: 10 mg, UNK

REACTIONS (2)
  - Injection site pain [Unknown]
  - Injection site bruising [Unknown]
